FAERS Safety Report 14630870 (Version 2)
Quarter: 2018Q2

REPORT INFORMATION
  Report Type: Report from Study
  Country: BR (occurrence: BR)
  Receive Date: 20180313
  Receipt Date: 20180605
  Transmission Date: 20180711
  Serious: Yes (Other)
  Sender: FDA-Public Use
  Company Number: BR-JNJFOC-20180306790

PATIENT
  Sex: Male
  Weight: 63 kg

DRUGS (5)
  1. SIMPONI [Suspect]
     Active Substance: GOLIMUMAB
     Indication: RHEUMATOID ARTHRITIS
     Route: 058
     Dates: start: 20160202
  2. DIPYRONE [Concomitant]
     Active Substance: DIPYRONE
     Route: 065
  3. REVANGE [Concomitant]
     Route: 065
  4. PREBICTAL [Concomitant]
     Active Substance: PREGABALIN
     Route: 065
  5. AMANTADINE HYDROCHLORIDE. [Concomitant]
     Active Substance: AMANTADINE HYDROCHLORIDE
     Route: 065

REACTIONS (6)
  - Urinary tract infection [Not Recovered/Not Resolved]
  - Urethral perforation [Unknown]
  - Bronchitis [Unknown]
  - Weight decreased [Unknown]
  - Rheumatoid arthritis [Not Recovered/Not Resolved]
  - Urethral haemorrhage [Unknown]

NARRATIVE: CASE EVENT DATE: 2018
